FAERS Safety Report 13900950 (Version 1)
Quarter: 2017Q3

REPORT INFORMATION
  Report Type: Spontaneous
  Country: US (occurrence: US)
  Receive Date: 20170824
  Receipt Date: 20170824
  Transmission Date: 20171127
  Serious: Yes (Hospitalization)
  Sender: FDA-Public Use
  Company Number: US-ENDO PHARMACEUTICALS INC-2017-000415

PATIENT
  Sex: Female
  Weight: 52.06 kg

DRUGS (9)
  1. HYDROMORPHONE [Concomitant]
     Active Substance: HYDROMORPHONE
     Indication: PAIN
     Dosage: UNK UNK, UNKNOWN
     Route: 065
     Dates: start: 2014
  2. RAPAMUNE [Concomitant]
     Active Substance: SIROLIMUS
     Indication: CHRONIC GRAFT VERSUS HOST DISEASE
     Dosage: 1 MG, OD
     Route: 065
     Dates: start: 201605
  3. MS CONTIN [Concomitant]
     Active Substance: MORPHINE SULFATE
     Indication: PAIN
     Dosage: 1 DF, BID
     Route: 065
     Dates: start: 2012
  4. RITUXAN [Concomitant]
     Active Substance: RITUXIMAB
     Indication: PRODUCT USED FOR UNKNOWN INDICATION
     Dosage: UNK UNK, UNKNOWN
     Route: 042
     Dates: start: 201609
  5. TACROLIMUS. [Concomitant]
     Active Substance: TACROLIMUS
     Indication: IMMUNOSUPPRESSION
     Dosage: UNK UNK, UNKNOWN
     Route: 065
     Dates: start: 20110814, end: 20160609
  6. PREDNISONE TABLETS [Suspect]
     Active Substance: PREDNISONE
     Indication: CHRONIC GRAFT VERSUS HOST DISEASE
     Dosage: 20 MG, QOD
     Route: 065
     Dates: start: 20160502
  7. PREDNISONE TABLETS [Suspect]
     Active Substance: PREDNISONE
     Dosage: 40 MG, QOD
     Route: 065
  8. MS CONTIN [Concomitant]
     Active Substance: MORPHINE SULFATE
     Dosage: 60 MG, AM
     Route: 065
  9. IBUPROFEN. [Concomitant]
     Active Substance: IBUPROFEN
     Indication: PAIN
     Dosage: UNK UNK, UNKNOWN
     Route: 065
     Dates: start: 201609

REACTIONS (4)
  - Arthralgia [Unknown]
  - Peripheral swelling [Recovering/Resolving]
  - Abdominal distension [Recovering/Resolving]
  - Osteonecrosis [Not Recovered/Not Resolved]
